FAERS Safety Report 17416679 (Version 1)
Quarter: 2020Q1

REPORT INFORMATION
  Report Type: Report from Study
  Country: None (occurrence: US)
  Receive Date: 20200214
  Receipt Date: 20200214
  Transmission Date: 20200409
  Serious: Yes (Hospitalization, Other)
  Sender: FDA-Public Use
  Company Number: US-ABBVIE-20K-163-3245596-00

PATIENT
  Age: 61 Year
  Sex: Male

DRUGS (5)
  1. HUMIRA [Suspect]
     Active Substance: ADALIMUMAB
     Indication: RHEUMATOID ARTHRITIS
     Route: 058
     Dates: start: 20191019, end: 20200107
  2. PREDNISONE. [Suspect]
     Active Substance: PREDNISONE
     Indication: PRODUCT USED FOR UNKNOWN INDICATION
     Route: 065
  3. NORVASC [Suspect]
     Active Substance: AMLODIPINE BESYLATE
     Indication: PRODUCT USED FOR UNKNOWN INDICATION
     Route: 065
  4. METFORMIN [Concomitant]
     Active Substance: METFORMIN HYDROCHLORIDE
     Indication: PRODUCT USED FOR UNKNOWN INDICATION
  5. ATENOLOL. [Suspect]
     Active Substance: ATENOLOL
     Indication: PRODUCT USED FOR UNKNOWN INDICATION
     Route: 065

REACTIONS (38)
  - Inflammatory marker decreased [Unknown]
  - Vitamin B12 decreased [Unknown]
  - Pericardial effusion [Unknown]
  - Oedema peripheral [Unknown]
  - Muscular weakness [Unknown]
  - Pain [Unknown]
  - General physical health deterioration [Not Recovered/Not Resolved]
  - Influenza like illness [Unknown]
  - Hypophagia [Unknown]
  - Swelling face [Unknown]
  - Contusion [Unknown]
  - Nausea [Unknown]
  - Dizziness [Unknown]
  - Head injury [Unknown]
  - Gastrointestinal oedema [Unknown]
  - Blood culture negative [Unknown]
  - Hallucination, visual [Unknown]
  - Depression [Unknown]
  - Cough [Unknown]
  - Gait disturbance [Unknown]
  - Malaise [Unknown]
  - Pallor [Unknown]
  - Skin abrasion [Unknown]
  - Impaired self-care [Unknown]
  - Anxiety [Unknown]
  - Fatigue [Unknown]
  - Fluid intake reduced [Unknown]
  - Oxygen saturation decreased [Unknown]
  - Weight decreased [Unknown]
  - Red blood cell count decreased [Unknown]
  - Back pain [Unknown]
  - Cardiac failure congestive [Unknown]
  - Dyspnoea [Unknown]
  - Pulmonary oedema [Unknown]
  - Mobility decreased [Unknown]
  - Visual impairment [Unknown]
  - Fall [Unknown]
  - Dehydration [Unknown]

NARRATIVE: CASE EVENT DATE: 202001
